FAERS Safety Report 22149746 (Version 1)
Quarter: 2023Q1

REPORT INFORMATION
  Report Type: Spontaneous
  Country: JP (occurrence: JP)
  Receive Date: 20230329
  Receipt Date: 20230329
  Transmission Date: 20230418
  Serious: Yes (Other)
  Sender: FDA-Public Use
  Company Number: JP-ABBVIE-22K-087-4310516-00

PATIENT
  Age: 71 Year
  Sex: Female

DRUGS (4)
  1. VENCLEXTA [Suspect]
     Active Substance: VENETOCLAX
     Indication: Acute myeloid leukaemia
     Dosage: 400 MILLIGRAM?DRUG END DATE 2022
     Route: 048
     Dates: start: 20220106
  2. VENCLEXTA [Suspect]
     Active Substance: VENETOCLAX
     Indication: Acute myeloid leukaemia
     Dosage: 200 MILLIGRAM
     Route: 048
     Dates: start: 202202
  3. AZACITIDINE [Concomitant]
     Active Substance: AZACITIDINE
     Indication: Acute myeloid leukaemia
     Dates: start: 202202
  4. AZACITIDINE [Concomitant]
     Active Substance: AZACITIDINE
     Indication: Acute myeloid leukaemia
     Dosage: DRUG END DATE 2022
     Dates: start: 20220106

REACTIONS (5)
  - Febrile neutropenia [Unknown]
  - Acute myeloid leukaemia recurrent [Unknown]
  - Bone marrow failure [Unknown]
  - Neutrophil count decreased [Recovered/Resolved]
  - Platelet count decreased [Unknown]
